FAERS Safety Report 8474692-4 (Version None)
Quarter: 2012Q2

REPORT INFORMATION
  Report Type: 
  Country: None (occurrence: None)
  Receive Date: 20120628
  Receipt Date: 20120627
  Transmission Date: 20120825
  Serious: Yes (Other)
  Sender: FDA-Public Use
  Company Number: US-PFIZER INC-880719-SK357

PATIENT
  Age: 28 Year
  Sex: Female

DRUGS (3)
  1. VERAPAMIL HCL [Suspect]
  2. DIGOXIN [Suspect]
     Dosage: 2.5 MG, 1X/DAY
     Route: 048
  3. VERAPAMIL [Suspect]
     Indication: ARRHYTHMIA
     Dosage: 360 MG, 1X/DAY
     Route: 048

REACTIONS (3)
  - FOETAL EXPOSURE DURING PREGNANCY [None]
  - DRUG INTERACTION [None]
  - FOETAL DEATH [None]
